FAERS Safety Report 10616427 (Version 8)
Quarter: 2015Q2

REPORT INFORMATION
  Report Type: Spontaneous
  Country: US (occurrence: US)
  Receive Date: 20141201
  Receipt Date: 20150611
  Transmission Date: 20150821
  Serious: No
  Sender: FDA-Public Use
  Company Number: US-PFIZER INC-2014325824

PATIENT
  Age: 47 Year
  Sex: Female
  Weight: 95 kg

DRUGS (9)
  1. RANITIDINE [Concomitant]
     Active Substance: RANITIDINE\RANITIDINE HYDROCHLORIDE
     Dosage: 150 MG, UNK
  2. LYRICA [Suspect]
     Active Substance: PREGABALIN
     Indication: FIBROMYALGIA
     Dosage: 100 MG, 3X/DAY (1 CAPSULE 3 TIMES A DAY)
     Dates: end: 2014
  3. PROTONIX [Concomitant]
     Active Substance: PANTOPRAZOLE SODIUM
     Dosage: 20 MG, UNK
  4. TRAMADOL [Concomitant]
     Active Substance: TRAMADOL
     Dosage: 50 MG, UNK
  5. SYNTHROID [Concomitant]
     Active Substance: LEVOTHYROXINE SODIUM
     Dosage: 25 ?G, UNK
  6. AMITRIPTYLINE [Concomitant]
     Active Substance: AMITRIPTYLINE
     Dosage: 75 MG, UNK
  7. CITALOPRAM [Concomitant]
     Active Substance: CITALOPRAM HYDROBROMIDE
     Dosage: 40 MG, UNK
  8. MELOXICAM. [Concomitant]
     Active Substance: MELOXICAM
     Dosage: 15 MG, UNK
  9. PROPRANOLOL [Concomitant]
     Active Substance: PROPRANOLOL\PROPRANOLOL HYDROCHLORIDE
     Dosage: 40 MG, UNK

REACTIONS (8)
  - Bedridden [Unknown]
  - Headache [Recovered/Resolved]
  - Migraine [Recovered/Resolved]
  - Back pain [Recovered/Resolved]
  - Activities of daily living impaired [Recovered/Resolved]
  - Malaise [Unknown]
  - Gait disturbance [Recovered/Resolved]
  - Pain [Recovered/Resolved]
